FAERS Safety Report 7294613-X (Version None)
Quarter: 2011Q1

REPORT INFORMATION
  Report Type: 
  Country: None (occurrence: None)
  Receive Date: 20110216
  Receipt Date: 20081008
  Transmission Date: 20110831
  Serious: No
  Sender: FDA-Public Use
  Company Number: 2008BI027197

PATIENT
  Sex: Female

DRUGS (1)
  1. TYSABRI [Suspect]
     Indication: MULTIPLE SCLEROSIS
     Route: 042
     Dates: start: 20080909

REACTIONS (5)
  - FATIGUE [None]
  - ANXIETY [None]
  - HEADACHE [None]
  - DEPRESSION [None]
  - NAUSEA [None]
